FAERS Safety Report 23450769 (Version 1)
Quarter: 2024Q1

REPORT INFORMATION
  Report Type: Report from Study
  Country: CA (occurrence: CA)
  Receive Date: 20240129
  Receipt Date: 20240129
  Transmission Date: 20240409
  Serious: Yes (Other)
  Sender: FDA-Public Use
  Company Number: CA-JNJFOC-20230209036

PATIENT
  Age: 15 Year
  Sex: Male
  Weight: 74.002 kg

DRUGS (1)
  1. REMICADE [Suspect]
     Active Substance: INFLIXIMAB
     Indication: Crohn^s disease
     Dosage: EXPIRY DATE: 28-FEB-2026, 23B167, EXPIRY: //2026
     Route: 041
     Dates: start: 20200309

REACTIONS (5)
  - Ingrowing nail [Recovering/Resolving]
  - Tinea pedis [Recovering/Resolving]
  - Abdominal discomfort [Unknown]
  - Inappropriate schedule of product administration [Unknown]
  - Off label use [Unknown]

NARRATIVE: CASE EVENT DATE: 20200309
